FAERS Safety Report 8249395-1 (Version None)
Quarter: 2012Q2

REPORT INFORMATION
  Report Type: 
  Country: None (occurrence: None)
  Receive Date: 20120402
  Receipt Date: 20120322
  Transmission Date: 20120825
  Serious: No
  Sender: FDA-Public Use
  Company Number: US-B.I. PHARMACEUTICALS,INC./RIDGEFIELD-2012-BP-05471BP

PATIENT
  Age: 82 Year
  Sex: Female

DRUGS (6)
  1. PLAVIX [Concomitant]
     Route: 048
     Dates: start: 20120201, end: 20120201
  2. LISINOPRIL [Concomitant]
     Indication: HYPERTENSION
     Dosage: 25 MG
     Route: 048
     Dates: end: 20120201
  3. PRADAXA [Suspect]
     Indication: ATRIAL FIBRILLATION
     Dosage: 300 MG
     Route: 048
     Dates: start: 20110801
  4. ASPIRIN [Concomitant]
     Indication: PROPHYLAXIS
     Dosage: 81 MG
     Route: 048
  5. LOPRESSOR [Concomitant]
     Indication: HYPERTENSION
     Dosage: 25 MG
     Route: 048
  6. THYROID TAB [Concomitant]
     Indication: HYPOTHYROIDISM
     Route: 048

REACTIONS (8)
  - FATIGUE [None]
  - BLOOD PRESSURE INCREASED [None]
  - DRY SKIN [None]
  - CONSTIPATION [None]
  - ABDOMINAL PAIN UPPER [None]
  - GINGIVAL BLEEDING [None]
  - SOMNOLENCE [None]
  - ALOPECIA [None]
